FAERS Safety Report 25750777 (Version 1)
Quarter: 2025Q3

REPORT INFORMATION
  Report Type: Spontaneous
  Country: SA (occurrence: SA)
  Receive Date: 20250902
  Receipt Date: 20250902
  Transmission Date: 20251021
  Serious: Yes (Other)
  Sender: PFIZER
  Company Number: SA-PFIZER INC-PV202500104737

PATIENT
  Age: 35 Year
  Sex: Male

DRUGS (1)
  1. BRENTUXIMAB VEDOTIN [Suspect]
     Active Substance: BRENTUXIMAB VEDOTIN
     Indication: Anaplastic large cell lymphoma T- and null-cell types

REACTIONS (3)
  - Inflammation [Recovering/Resolving]
  - Lactic acidosis [Recovering/Resolving]
  - Electrolyte imbalance [Recovering/Resolving]
